FAERS Safety Report 18040034 (Version 2)
Quarter: 2020Q3

REPORT INFORMATION
  Report Type: Spontaneous
  Country: US (occurrence: US)
  Receive Date: 20200717
  Receipt Date: 20200817
  Transmission Date: 20201103
  Serious: Yes (Other)
  Sender: FDA-Public Use
  Company Number: US-GILEAD-2020-0481635

PATIENT

DRUGS (1)
  1. TRUVADA [Suspect]
     Active Substance: EMTRICITABINE\TENOFOVIR DISOPROXIL FUMARATE
     Indication: HIV INFECTION
     Dosage: UNK
     Route: 048
     Dates: start: 2012, end: 2017

REACTIONS (7)
  - Anxiety [Unknown]
  - Osteoporosis [Unknown]
  - Pain [Unknown]
  - Chronic kidney disease [Unknown]
  - Anhedonia [Unknown]
  - Osteonecrosis [Unknown]
  - Emotional distress [Unknown]
